FAERS Safety Report 5053385-X (Version None)
Quarter: 2006Q3

REPORT INFORMATION
  Report Type: 
  Country: None (occurrence: None)
  Receive Date: 20060718
  Receipt Date: 20060707
  Transmission Date: 20061208
  Serious: Yes (Other)
  Sender: FDA-Public Use
  Company Number: PHNU2006DE02467

PATIENT
  Sex: Male

DRUGS (1)
  1. DESFERAL [Suspect]
     Indication: HAEMOSIDEROSIS
     Dosage: 2 G, QW5
     Route: 058
     Dates: start: 20020101

REACTIONS (2)
  - LEUKOCYTOSIS [None]
  - PLATELET COUNT INCREASED [None]
